FAERS Safety Report 8576850-7 (Version None)
Quarter: 2012Q3

REPORT INFORMATION
  Report Type: 
  Country: None (occurrence: None)
  Receive Date: 20120807
  Receipt Date: 20120803
  Transmission Date: 20120928
  Serious: Yes (Other)
  Sender: FDA-Public Use
  Company Number: US-TEVA-352186USA

PATIENT
  Age: 63 Year
  Sex: Female
  Weight: 52.21 kg

DRUGS (3)
  1. COPAXONE [Suspect]
     Indication: MULTIPLE SCLEROSIS
     Dosage: 20 MILLIGRAM DAILY;
     Route: 058
     Dates: start: 20120401
  2. THYROID TAB [Concomitant]
     Dosage: 15 MILLIGRAM DAILY;
     Route: 048
  3. N-ACETYL GLUCOSAMINE [Concomitant]
     Indication: MEDICAL DIET
     Route: 048

REACTIONS (4)
  - ABASIA [None]
  - INJECTION SITE PRURITUS [None]
  - INJECTION SITE PAIN [None]
  - PAIN [None]
